FAERS Safety Report 17416891 (Version 1)
Quarter: 2020Q1

REPORT INFORMATION
  Report Type: Spontaneous
  Country: US (occurrence: US)
  Receive Date: 20200214
  Receipt Date: 20200214
  Transmission Date: 20200409
  Serious: Yes (Hospitalization, Other)
  Sender: FDA-Public Use
  Company Number: US-SA-2020SA038873

PATIENT
  Sex: Female
  Weight: 90.3 kg

DRUGS (4)
  1. PLAVIX [Suspect]
     Active Substance: CLOPIDOGREL BISULFATE
     Dosage: UNK
     Route: 065
  2. ORENCIA [Suspect]
     Active Substance: ABATACEPT
     Dosage: RESTARTED IN LATE 2018 OR EARLY 2019
     Route: 065
  3. ORENCIA [Suspect]
     Active Substance: ABATACEPT
     Indication: RHEUMATOID ARTHRITIS
     Dosage: UNK
     Route: 065
     Dates: start: 2015
  4. ELIQUIS [Suspect]
     Active Substance: APIXABAN
     Dosage: UNK UNK, BID (LATE 2018 OR EARLY 2019)
     Route: 048

REACTIONS (3)
  - Pain [Unknown]
  - Pulmonary embolism [Unknown]
  - Hypersensitivity [Unknown]
